FAERS Safety Report 8604887-8 (Version None)
Quarter: 2012Q3

REPORT INFORMATION
  Report Type: 
  Country: None (occurrence: None)
  Receive Date: 20120820
  Receipt Date: 20120810
  Transmission Date: 20120928
  Serious: Yes (Other)
  Sender: FDA-Public Use
  Company Number: US-ASTELLAS-2012US006869

PATIENT
  Sex: Male

DRUGS (2)
  1. PROGRAF [Suspect]
     Indication: STEM CELL TRANSPLANT
     Dosage: 5 MG, UID/QD
     Route: 048
  2. PROGRAF [Suspect]
     Indication: BONE MARROW TRANSPLANT

REACTIONS (3)
  - OFF LABEL USE [None]
  - BONE MARROW TRANSPLANT [None]
  - TRANSPLANT [None]
